FAERS Safety Report 10923896 (Version 2)
Quarter: 2015Q2

REPORT INFORMATION
  Report Type: Report from Study
  Country: BR (occurrence: BR)
  Receive Date: 20150318
  Receipt Date: 20150617
  Transmission Date: 20150821
  Serious: Yes (Hospitalization, Other)
  Sender: FDA-Public Use
  Company Number: BR-BIOGENIDEC-2014BI082474

PATIENT
  Age: 49 Year
  Sex: Female

DRUGS (5)
  1. PARACETAMOL [Concomitant]
     Active Substance: ACETAMINOPHEN
     Indication: PREMEDICATION
  2. AVONEX [Suspect]
     Active Substance: INTERFERON BETA-1A
     Indication: MULTIPLE SCLEROSIS
     Route: 030
     Dates: start: 20081204
  3. DIOVAN [Concomitant]
     Active Substance: VALSARTAN
     Indication: HYPERTENSION
  4. PRISTIQ EXTENDED RELEASE [Concomitant]
     Active Substance: DESVENLAFAXINE SUCCINATE
     Indication: DEPRESSION
  5. AVONEX [Suspect]
     Active Substance: INTERFERON BETA-1A
     Indication: MULTIPLE SCLEROSIS
     Route: 030

REACTIONS (16)
  - Coordination abnormal [Recovered/Resolved]
  - Post procedural haemorrhage [Unknown]
  - Hypertension [Not Recovered/Not Resolved]
  - Hysterectomy [Unknown]
  - Multiple sclerosis relapse [Recovered/Resolved]
  - Migraine [Not Recovered/Not Resolved]
  - Malaise [Not Recovered/Not Resolved]
  - Stress [Unknown]
  - Pain in extremity [Unknown]
  - Arthralgia [Unknown]
  - Dizziness [Recovered/Resolved]
  - Panic disorder [Unknown]
  - Hypoaesthesia [Unknown]
  - Depressed mood [Not Recovered/Not Resolved]
  - Pharyngitis [Recovered/Resolved]
  - Pain [Recovered/Resolved]

NARRATIVE: CASE EVENT DATE: 2010
